FAERS Safety Report 4909733-1 (Version None)
Quarter: 2006Q1

REPORT INFORMATION
  Report Type: 
  Country: None (occurrence: None)
  Receive Date: 20060209
  Receipt Date: 20060127
  Transmission Date: 20060701
  Serious: Yes (Death)
  Sender: FDA-Public Use
  Company Number: 2006014541

PATIENT
  Age: 77 Year
  Sex: Male

DRUGS (3)
  1. DIFLUCAN [Suspect]
     Indication: CANDIDIASIS
  2. TRACLEER [Suspect]
     Indication: PULMONARY HYPERTENSION
     Dosage: 62.5 MG (BID), ORAL; 125 MG (BID), ORAL
     Route: 048
     Dates: start: 20040801, end: 20040901
  3. TRACLEER [Suspect]
     Indication: PULMONARY HYPERTENSION
     Dosage: 62.5 MG (BID), ORAL; 125 MG (BID), ORAL
     Route: 048
     Dates: start: 20040901, end: 20050501

REACTIONS (6)
  - CANDIDIASIS [None]
  - CONDITION AGGRAVATED [None]
  - DRUG INTERACTION [None]
  - IDIOPATHIC PULMONARY FIBROSIS [None]
  - ORTHOSTATIC HYPOTENSION [None]
  - PULMONARY HYPERTENSION [None]
